FAERS Safety Report 7522434-9 (Version None)
Quarter: 2011Q2

REPORT INFORMATION
  Report Type: 
  Country: None (occurrence: None)
  Receive Date: 20110603
  Receipt Date: 20110526
  Transmission Date: 20111010
  Serious: Yes (Hospitalization)
  Sender: FDA-Public Use
  Company Number: NL-ROCHE-704492

PATIENT
  Sex: Male
  Weight: 67 kg

DRUGS (20)
  1. PANTOPRAZOLE [Concomitant]
     Dates: start: 20100801
  2. FRAXIPARINE [Concomitant]
     Dates: start: 20100617, end: 20100621
  3. BEVACIZUMAB [Suspect]
     Dosage: TEMPORARILY INTERRUPTED.
     Route: 042
     Dates: start: 20100521, end: 20100622
  4. CISPLATIN [Suspect]
     Indication: NON-SMALL CELL LUNG CANCER
     Dosage: LAST DOSE PRIOR TO SAE: 21 APRIL 2010, TEMPORARILY INTERRUPTED
     Route: 042
     Dates: start: 20100303, end: 20100512
  5. PEMETREXED [Suspect]
     Indication: NON-SMALL CELL LUNG CANCER
     Dosage: LAST DOSE PRIOR TO SAE: 21 APRIL 2010, TEMPORARILY INTERRUPTED
     Route: 042
     Dates: start: 20100303, end: 20100512
  6. PANTOPRAZOLE [Concomitant]
     Dates: start: 20040801
  7. EMEND [Concomitant]
     Dates: start: 20100303
  8. BEVACIZUMAB [Suspect]
     Indication: NON-SMALL CELL LUNG CANCER
     Dosage: LAST DOSE PRIOR TO SAE: 22 APRIL 2010, TEMPORARILY INTERRUPTED
     Route: 042
     Dates: start: 20100303, end: 20100512
  9. BISOPROLOL FUMARATE [Concomitant]
     Dates: start: 20040902, end: 20100328
  10. SUCRALFATE [Concomitant]
     Dates: start: 20100315
  11. ASPIRIN [Concomitant]
     Dosage: DRUG REPORTED AS ACETHYLSALISYLZUUR.
     Dates: start: 20050801
  12. BISOPROLOL FUMARATE [Concomitant]
     Dates: start: 20100621
  13. VITAMIN B-12 [Concomitant]
     Dates: start: 20100219
  14. ZOFRAN [Concomitant]
  15. DEXAMETHASONE [Concomitant]
     Dates: start: 20100203
  16. PANTOPRAZOLE [Concomitant]
     Dates: start: 20091226
  17. FOLIC ACID [Concomitant]
     Dates: start: 20100219
  18. ZOPICLON [Concomitant]
     Dates: start: 20100212
  19. CISPLATIN [Suspect]
     Route: 042
     Dates: start: 20100521, end: 20100622
  20. PEMETREXED [Suspect]
     Dosage: TEMPORARILY INTERRUPTED
     Route: 042
     Dates: start: 20100521, end: 20100622

REACTIONS (1)
  - RENAL IMPAIRMENT [None]
